FAERS Safety Report 6474554-8 (Version None)
Quarter: 2009Q4

REPORT INFORMATION
  Report Type: 
  Country: None (occurrence: None)
  Receive Date: 20091204
  Receipt Date: 20091126
  Transmission Date: 20100525
  Serious: Yes (Hospitalization)
  Sender: FDA-Public Use
  Company Number: FR-B.I. PHARMACEUTICALS,INC./RIDGEFIELD-2009-DE-07347BY

PATIENT
  Sex: Male

DRUGS (5)
  1. PRITOR PLUS [Suspect]
     Dosage: 1 ANZ
     Route: 048
     Dates: start: 20070101, end: 20090528
  2. PROZAC [Suspect]
     Dosage: 20 MG
     Route: 048
     Dates: start: 20061101, end: 20090528
  3. PARIET [Suspect]
     Dosage: 20 MG
     Route: 048
     Dates: start: 20061107, end: 20090528
  4. TEMERIT [Concomitant]
     Dosage: 5 MG
     Route: 065
     Dates: start: 20061101
  5. CRESTOR [Concomitant]
     Dosage: 10 MG
     Route: 065
     Dates: start: 20061101

REACTIONS (2)
  - HYPOCHLORAEMIA [None]
  - HYPONATRAEMIA [None]
